FAERS Safety Report 8351358-2 (Version None)
Quarter: 2012Q2

REPORT INFORMATION
  Report Type: 
  Country: None (occurrence: None)
  Receive Date: 20120510
  Receipt Date: 20120501
  Transmission Date: 20120825
  Serious: Yes (Hospitalization)
  Sender: FDA-Public Use
  Company Number: US-ASTRAZENECA-2011SE14517

PATIENT
  Age: 83 Year
  Sex: Male
  Weight: 93.9 kg

DRUGS (5)
  1. METOPROLOL TARTRATE [Concomitant]
     Indication: HYPERTENSION
     Route: 048
  2. OXYCONTIN [Concomitant]
     Indication: PAIN
     Route: 048
  3. SYMBICORT [Suspect]
     Dosage: 160/4.5 MICROGRAMS,  2 PUFFS TWO TIMES A DAY.
     Route: 055
     Dates: start: 20120428
  4. SYMBICORT [Suspect]
     Indication: CHRONIC OBSTRUCTIVE PULMONARY DISEASE
     Dosage: 160/4.5 MICROGRAMS,  2 PUFFS TWO TIMES A DAY.
     Route: 055
     Dates: start: 20080101, end: 20120214
  5. OXYCONTIN [Concomitant]
     Indication: BACK DISORDER
     Route: 048

REACTIONS (3)
  - DYSPNOEA [None]
  - NECK INJURY [None]
  - FALL [None]
